FAERS Safety Report 19367897 (Version 1)
Quarter: 2021Q2

REPORT INFORMATION
  Report Type: Spontaneous
  Country: TW (occurrence: TW)
  Receive Date: 20210603
  Receipt Date: 20210603
  Transmission Date: 20210717
  Serious: Yes (Other)
  Sender: FDA-Public Use
  Company Number: TW-PFIZER INC-2021578024

PATIENT
  Age: 60 Year
  Sex: Male

DRUGS (1)
  1. XELJANZ [Suspect]
     Active Substance: TOFACITINIB CITRATE
     Indication: PSORIATIC ARTHROPATHY
     Dosage: 5MG/BID
     Route: 048
     Dates: start: 20200813, end: 20210520

REACTIONS (4)
  - Ophthalmic herpes zoster [Recovering/Resolving]
  - Visual impairment [Recovering/Resolving]
  - Herpes zoster [Recovering/Resolving]
  - Injury corneal [Recovering/Resolving]
